FAERS Safety Report 13581106 (Version 1)
Quarter: 2017Q2

REPORT INFORMATION
  Report Type: Spontaneous
  Country: US (occurrence: US)
  Receive Date: 20170525
  Receipt Date: 20170525
  Transmission Date: 20170830
  Serious: Yes (Other)
  Sender: FDA-Public Use
  Company Number: None

PATIENT
  Age: 54 Year
  Sex: Male
  Weight: 97.65 kg

DRUGS (12)
  1. SULFASALAZINE. [Concomitant]
     Active Substance: SULFASALAZINE
  2. VITAMIN C [Concomitant]
     Active Substance: ASCORBIC ACID
  3. VITAMIN B [Concomitant]
     Active Substance: VITAMIN B
  4. TINIDAZOLE. [Concomitant]
     Active Substance: TINIDAZOLE
  5. COLOSTRUM HUMAN [Concomitant]
     Active Substance: HUMAN COLOSTRUM
  6. FISH OIL [Concomitant]
     Active Substance: FISH OIL
  7. HYDROXYCHLOROQUINNE [Concomitant]
  8. CLARITHROMYCIN. [Concomitant]
     Active Substance: CLARITHROMYCIN
  9. MINOCYCLINE [Suspect]
     Active Substance: MINOCYCLINE\MINOCYCLINE HYDROCHLORIDE
     Indication: ARTHRITIS REACTIVE
     Dosage: ?          QUANTITY:2 CAPSULE(S);?
     Route: 048
     Dates: start: 20170425
  10. VITAMIN D [Concomitant]
     Active Substance: CHOLECALCIFEROL
  11. MINOCYCLINE [Suspect]
     Active Substance: MINOCYCLINE\MINOCYCLINE HYDROCHLORIDE
     Indication: LYME DISEASE
     Dosage: ?          QUANTITY:2 CAPSULE(S);?
     Route: 048
     Dates: start: 20170425
  12. HEMP OIL [Concomitant]
     Active Substance: CANNABIS SATIVA SEED OIL

REACTIONS (3)
  - Inflammation [None]
  - Product substitution issue [None]
  - Drug ineffective [None]

NARRATIVE: CASE EVENT DATE: 20170425
